FAERS Safety Report 21372323 (Version 1)
Quarter: 2022Q3

REPORT INFORMATION
  Report Type: Spontaneous
  Country: US (occurrence: US)
  Receive Date: 20220924
  Receipt Date: 20220924
  Transmission Date: 20221027
  Serious: Yes (Hospitalization, Other)
  Sender: FDA-Public Use
  Company Number: US-LUPIN PHARMACEUTICALS INC.-2022-11348

PATIENT
  Age: 57 Year
  Sex: Male

DRUGS (7)
  1. METOCLOPRAMIDE [Suspect]
     Active Substance: METOCLOPRAMIDE
     Indication: Impaired gastric emptying
     Dosage: UNK
     Route: 065
  2. FAMOTIDINE [Suspect]
     Active Substance: FAMOTIDINE
     Indication: Impaired gastric emptying
     Dosage: UNK
     Route: 065
  3. PROCHLORPERAZINE [Suspect]
     Active Substance: PROCHLORPERAZINE
     Indication: Impaired gastric emptying
     Dosage: UNK
     Route: 048
  4. ONDANSETRON [Suspect]
     Active Substance: ONDANSETRON
     Indication: Impaired gastric emptying
     Dosage: UNK
     Route: 048
  5. BACLOFEN [Suspect]
     Active Substance: BACLOFEN
     Indication: Impaired gastric emptying
     Dosage: UNK
     Route: 065
  6. PFIZER-BIONTECH COVID-19 VACCINE [Concomitant]
     Active Substance: TOZINAMERAN
     Indication: COVID-19 prophylaxis
     Dosage: UNK
     Route: 065
     Dates: start: 202012
  7. PFIZER-BIONTECH COVID-19 VACCINE [Concomitant]
     Active Substance: TOZINAMERAN
     Dosage: UNK, TWENTY-THREE DAYS AFTER RECEIVING DOSE ONE
     Route: 065

REACTIONS (3)
  - Akathisia [Unknown]
  - Drug ineffective for unapproved indication [Unknown]
  - Off label use [Unknown]
